FAERS Safety Report 24991450 (Version 1)
Quarter: 2025Q1

REPORT INFORMATION
  Report Type: Spontaneous
  Country: US (occurrence: US)
  Receive Date: 20250220
  Receipt Date: 20250220
  Transmission Date: 20250409
  Serious: No
  Sender: ARCUTIS
  Company Number: US-ARCUTIS BIOTHERAPEUTICS INC-2024AER000392

PATIENT

DRUGS (2)
  1. ZORYVE [Suspect]
     Active Substance: ROFLUMILAST
     Indication: Dermatitis atopic
     Dosage: SIZE OF 2 THUMBS PRINTS, QD
     Route: 061
     Dates: start: 202411, end: 20241106
  2. LEVOTHYROXINE [Concomitant]
     Active Substance: LEVOTHYROXINE
     Indication: Product used for unknown indication
     Route: 048

REACTIONS (3)
  - Dermatitis atopic [Not Recovered/Not Resolved]
  - Fungal infection [Unknown]
  - Application site pain [Unknown]

NARRATIVE: CASE EVENT DATE: 20241101
